FAERS Safety Report 9928053 (Version 2)
Quarter: 2014Q1

REPORT INFORMATION
  Report Type: Spontaneous
  Country: US (occurrence: US)
  Receive Date: 20140227
  Receipt Date: 20140227
  Transmission Date: 20141002
  Serious: No
  Sender: FDA-Public Use
  Company Number: US-DRREDDYS-USA/USA/13/0035673

PATIENT
  Age: 31 Year
  Sex: Female

DRUGS (2)
  1. MONTELUKAST TABLETS 10 MG [Suspect]
     Indication: ASTHMA
     Route: 048
     Dates: start: 20130915, end: 20131017
  2. MONTELUKAST TABLETS 10 MG [Suspect]
     Indication: HYPERSENSITIVITY

REACTIONS (3)
  - Drug ineffective [Unknown]
  - Product quality issue [Unknown]
  - Product taste abnormal [Unknown]
